FAERS Safety Report 5741772-3 (Version None)
Quarter: 2008Q2

REPORT INFORMATION
  Report Type: 
  Country: None (occurrence: None)
  Receive Date: 20080519
  Receipt Date: 20080508
  Transmission Date: 20081010
  Serious: Yes (Hospitalization)
  Sender: FDA-Public Use
  Company Number: DE-SP-2008-01582

PATIENT
  Age: 71 Year
  Sex: Male

DRUGS (1)
  1. IMMUCYST [Suspect]
     Indication: BLADDER CANCER
     Dosage: NOT REPORTED
     Route: 065

REACTIONS (4)
  - ARTHRALGIA [None]
  - BACTERIA URINE [None]
  - CYSTITIS [None]
  - PYREXIA [None]
